FAERS Safety Report 20104422 (Version 1)
Quarter: 2021Q4

REPORT INFORMATION
  Report Type: Spontaneous
  Country: PY (occurrence: PY)
  Receive Date: 20211123
  Receipt Date: 20211123
  Transmission Date: 20220303
  Serious: Yes (Other)
  Sender: FDA-Public Use
  Company Number: PY-FRESENIUS KABI-FK202112967

PATIENT
  Age: 8 Year
  Sex: Female

DRUGS (4)
  1. COLISTIMETHATE SODIUM [Suspect]
     Active Substance: COLISTIMETHATE SODIUM
     Indication: CNS ventriculitis
     Route: 065
  2. COLISTIMETHATE SODIUM [Suspect]
     Active Substance: COLISTIMETHATE SODIUM
     Route: 065
  3. MEROPENEM [Suspect]
     Active Substance: MEROPENEM
     Indication: CNS ventriculitis
     Route: 065
  4. MEROPENEM [Suspect]
     Active Substance: MEROPENEM
     Route: 065

REACTIONS (3)
  - CNS ventriculitis [Recovered/Resolved]
  - Flavobacterium infection [Recovered/Resolved]
  - Pathogen resistance [Recovered/Resolved]
